FAERS Safety Report 14848322 (Version 2)
Quarter: 2018Q2

REPORT INFORMATION
  Report Type: Report from Study
  Country: US (occurrence: US)
  Receive Date: 20180504
  Receipt Date: 20180522
  Transmission Date: 20180711
  Serious: Yes (Hospitalization)
  Sender: FDA-Public Use
  Company Number: US-JAZZ-2018-US-007189

PATIENT
  Sex: Female

DRUGS (2)
  1. XYREM [Suspect]
     Active Substance: SODIUM OXYBATE
     Indication: PRODUCT USED FOR UNKNOWN INDICATION
     Dosage: 9 G NIGHTLY
     Route: 048
     Dates: start: 2017
  2. DEXILANT [Suspect]
     Active Substance: DEXLANSOPRAZOLE
     Indication: PRODUCT USED FOR UNKNOWN INDICATION

REACTIONS (2)
  - Rash [Recovered/Resolved]
  - Oedema peripheral [Recovering/Resolving]

NARRATIVE: CASE EVENT DATE: 201803
